FAERS Safety Report 9817649 (Version 2)
Quarter: 2014Q1

REPORT INFORMATION
  Report Type: Spontaneous
  Country: BR (occurrence: BR)
  Receive Date: 20140115
  Receipt Date: 20140115
  Transmission Date: 20141002
  Serious: Yes (Other)
  Sender: FDA-Public Use
  Company Number: BR-ASTRAZENECA-2011SE67136

PATIENT
  Age: 60 Year
  Sex: Male

DRUGS (3)
  1. ATACAND HCT [Suspect]
     Indication: HYPERTENSION
     Dosage: 16/12.5MG TWICE A DAY
     Route: 048
     Dates: start: 2004
  2. ABLOK [Concomitant]
     Indication: ARRHYTHMIA
     Route: 048
     Dates: start: 2009
  3. OMEGA 3 [Concomitant]
     Route: 048
     Dates: end: 2011

REACTIONS (4)
  - Diabetes mellitus [Recovering/Resolving]
  - Arrhythmia [Recovering/Resolving]
  - Urine output increased [Not Recovered/Not Resolved]
  - Off label use [Not Recovered/Not Resolved]
